FAERS Safety Report 8288076-5 (Version None)
Quarter: 2012Q2

REPORT INFORMATION
  Report Type: 
  Country: None (occurrence: None)
  Receive Date: 20120416
  Receipt Date: 20120410
  Transmission Date: 20120825
  Serious: Yes (Other)
  Sender: FDA-Public Use
  Company Number: US-PFIZER INC-2012089656

PATIENT
  Sex: Male
  Weight: 90.703 kg

DRUGS (3)
  1. CYMBALTA [Concomitant]
     Indication: PAIN
     Dosage: 60 MG IN MORNING AND 30 MG EVENING TWO TIMES A DAY.
  2. LYRICA [Suspect]
     Indication: NEURALGIA
     Dosage: 50 MG, 2X/DAY
     Route: 048
     Dates: start: 20120101
  3. HUMULIN R [Concomitant]
     Indication: DIABETES MELLITUS
     Dosage: 500 UNITS

REACTIONS (2)
  - PAIN [None]
  - DRUG INEFFECTIVE [None]
